FAERS Safety Report 4519129-2 (Version None)
Quarter: 2004Q4

REPORT INFORMATION
  Report Type: 
  Country: None (occurrence: None)
  Receive Date: 20041201
  Receipt Date: 20041122
  Transmission Date: 20050328
  Serious: Yes (Life-Threatening, Hospitalization)
  Sender: FDA-Public Use
  Company Number: 2004CG02336

PATIENT
  Age: 84 Year
  Sex: Male
  Weight: 85 kg

DRUGS (7)
  1. OMEPRAZOLE [Suspect]
     Dosage: 40 MG DAILY PO
     Route: 048
  2. PREVISCAN [Suspect]
     Dosage: 5 MG DAILY PO
     Route: 048
     Dates: end: 20011118
  3. LEXOMIL [Concomitant]
  4. DIFFU K [Concomitant]
  5. STABLON [Concomitant]
  6. MONICOR [Concomitant]
  7. DIGOXIN [Suspect]

REACTIONS (12)
  - BRADYCARDIA [None]
  - CARDIAC FAILURE [None]
  - DEPRESSED LEVEL OF CONSCIOUSNESS [None]
  - DRUG INTERACTION [None]
  - ELECTROCARDIOGRAM QRS COMPLEX PROLONGED [None]
  - GENERAL PHYSICAL HEALTH DETERIORATION [None]
  - GENERALISED OEDEMA [None]
  - HYPERCAPNIA [None]
  - HYPONATRAEMIA [None]
  - INTERNATIONAL NORMALISED RATIO INCREASED [None]
  - PLEURAL EFFUSION [None]
  - THERAPEUTIC AGENT TOXICITY [None]
